FAERS Safety Report 10158222 (Version 1)
Quarter: 2014Q2

REPORT INFORMATION
  Report Type: Spontaneous
  Country: US (occurrence: US)
  Receive Date: 20140507
  Receipt Date: 20140507
  Transmission Date: 20141212
  Serious: No
  Sender: FDA-Public Use
  Company Number: US-009507513-1404USA014320

PATIENT
  Sex: Male

DRUGS (2)
  1. CLARITIN CHEWABLE TABLETS [Suspect]
     Indication: SINUS DISORDER
     Dosage: UNK, UNKNOWN
     Route: 048
     Dates: start: 201404
  2. CLARITIN CHEWABLE TABLETS [Suspect]
     Indication: HYPERSENSITIVITY

REACTIONS (2)
  - Therapeutic response changed [Unknown]
  - Drug effect decreased [Unknown]
